FAERS Safety Report 8155836-0 (Version None)
Quarter: 2012Q1

REPORT INFORMATION
  Report Type: 
  Country: None (occurrence: None)
  Receive Date: 20120222
  Receipt Date: 20120220
  Transmission Date: 20120608
  Serious: No
  Sender: FDA-Public Use
  Company Number: US-BAYER-2012-017034

PATIENT
  Age: 52 Year
  Sex: Female
  Weight: 63 kg

DRUGS (7)
  1. COD LIVER OIL [Concomitant]
  2. BETASERON [Suspect]
     Dosage: 0.25 MG/ML, QOD
     Route: 058
  3. BACLOFEN [Concomitant]
     Dosage: 10 MG, UNK
  4. VITAMIN D [Concomitant]
     Dosage: 400 UNK, UNK
     Route: 048
  5. FOLIC ACID [Concomitant]
     Dosage: 1 MG, UNK
  6. METHYLPREDNISOLONE [Concomitant]
     Dosage: 40 MG/ML, UNK
  7. AMPHETAMINE AND DEXTROAMPHETAMINE SALTS [Concomitant]
     Dosage: 10 MG, UNK

REACTIONS (3)
  - MIGRAINE [None]
  - HEADACHE [None]
  - INJECTION SITE ERYTHEMA [None]
